FAERS Safety Report 8160853-0 (Version None)
Quarter: 2012Q1

REPORT INFORMATION
  Report Type: 
  Country: None (occurrence: None)
  Receive Date: 20120223
  Receipt Date: 20120220
  Transmission Date: 20120608
  Serious: Yes (Other)
  Sender: FDA-Public Use
  Company Number: PHHY2012DE008328

PATIENT
  Sex: Female
  Weight: 67 kg

DRUGS (5)
  1. PREDNISOLONE [Concomitant]
     Route: 065
     Dates: start: 20100127
  2. HYDROCHLOROTHIAZIDE [Concomitant]
     Dosage: 12.5 MG, UNK
     Route: 065
     Dates: start: 20101216
  3. CLEMASTINE [Concomitant]
     Route: 065
     Dates: start: 20110127
  4. BLOOD TRANSFUSION, AUXILIARY PRODUCTS [Concomitant]
     Indication: ANAEMIA
     Dosage: 4 U, PER MONTH
     Route: 042
     Dates: start: 20100210
  5. EXJADE [Suspect]
     Indication: MYELODYSPLASTIC SYNDROME
     Dosage: 1000 MG, DAILY
     Route: 048
     Dates: start: 20101026, end: 20111208

REACTIONS (2)
  - ABASIA [None]
  - GENERAL PHYSICAL HEALTH DETERIORATION [None]
